FAERS Safety Report 7940722-9 (Version None)
Quarter: 2011Q4

REPORT INFORMATION
  Report Type: 
  Country: None (occurrence: None)
  Receive Date: 20111128
  Receipt Date: 20111116
  Transmission Date: 20120403
  Serious: Yes (Other)
  Sender: FDA-Public Use
  Company Number: US-JNJFOC-20111107254

PATIENT
  Sex: Male
  Weight: 70.31 kg

DRUGS (7)
  1. ZOLOFT [Concomitant]
     Indication: DEPRESSION
     Route: 048
     Dates: start: 20000101
  2. PERCOCET [Concomitant]
     Indication: PAIN
     Dosage: ONE IN 4 HOURS AS NECESSARY
     Route: 048
     Dates: start: 20000101
  3. TOPAMAX [Concomitant]
     Indication: HEADACHE
     Route: 048
     Dates: start: 20000101
  4. ZANAFLEX [Concomitant]
     Indication: PRODUCT USED FOR UNKNOWN INDICATION
     Route: 048
     Dates: start: 20000101
  5. DURAGESIC-100 [Suspect]
     Indication: BACK DISORDER
     Dosage: 75 UG + 75 UG
     Route: 062
     Dates: start: 20020101
  6. ACETAMINOPHEN [Concomitant]
     Indication: SLEEP DISORDER
     Route: 048
     Dates: start: 20000101
  7. TRAZODONE HCL [Concomitant]
     Indication: SLEEP DISORDER
     Route: 048
     Dates: start: 20000101

REACTIONS (5)
  - DRUG DOSE OMISSION [None]
  - BLOOD URINE PRESENT [None]
  - WRONG TECHNIQUE IN DRUG USAGE PROCESS [None]
  - BLADDER NEOPLASM [None]
  - NEPHROLITHIASIS [None]
